FAERS Safety Report 8820143 (Version 2)
Quarter: 2015Q2

REPORT INFORMATION
  Report Type: Report from Study
  Country: US (occurrence: US)
  Receive Date: 20121001
  Receipt Date: 20150413
  Transmission Date: 20150821
  Serious: Yes (Death)
  Sender: FDA-Public Use
  Company Number: US-ROCHE-1123441

PATIENT
  Sex: Male

DRUGS (2)
  1. RITUXAN [Suspect]
     Active Substance: RITUXIMAB
     Indication: RHEUMATOID ARTHRITIS
     Route: 042
  2. RITUXAN [Suspect]
     Active Substance: RITUXIMAB
     Indication: POLYARTHRITIS

REACTIONS (1)
  - Death [Fatal]
